FAERS Safety Report 4624029-3 (Version None)
Quarter: 2005Q1

REPORT INFORMATION
  Report Type: 
  Country: None (occurrence: None)
  Receive Date: 20050331
  Receipt Date: 20041214
  Transmission Date: 20050727
  Serious: Yes (Other)
  Sender: FDA-Public Use
  Company Number: PHBS2004CL16737

PATIENT
  Age: 22 Year
  Sex: Male

DRUGS (1)
  1. LEPONEX [Suspect]
     Route: 048

REACTIONS (1)
  - TESTICULAR EMBRYONAL CARCINOMA [None]
